FAERS Safety Report 6675172-9 (Version None)
Quarter: 2010Q2

REPORT INFORMATION
  Report Type: 
  Country: None (occurrence: None)
  Receive Date: 20100409
  Receipt Date: 20100331
  Transmission Date: 20101027
  Serious: Yes (Hospitalization)
  Sender: FDA-Public Use
  Company Number: GXKR2010GR03850

PATIENT
  Age: 82 Year
  Sex: Female

DRUGS (6)
  1. ALENDRONIC ACID (NGX) [Interacting]
     Dosage: UNK
     Route: 048
  2. PREDNISOLONE [Suspect]
     Dosage: 5 MG, UNK
     Route: 065
  3. LEFLUNOMIDE [Concomitant]
     Indication: RHEUMATOID ARTHRITIS
  4. CALCIUM WITH VITAMIN D [Concomitant]
  5. VERAPAMIL [Concomitant]
  6. TRIMETAZIDINE [Concomitant]

REACTIONS (6)
  - BONE DEBRIDEMENT [None]
  - DRUG INTERACTION [None]
  - ORAL CAVITY FISTULA [None]
  - OSTEONECROSIS [None]
  - PAIN IN JAW [None]
  - SWELLING FACE [None]
